FAERS Safety Report 10527426 (Version 1)
Quarter: 2014Q4

REPORT INFORMATION
  Report Type: Spontaneous
  Country: US (occurrence: None)
  Receive Date: 20141016
  Receipt Date: 20141016
  Transmission Date: 20150528
  Serious: Yes (Other)
  Sender: FDA-Public Use
  Company Number: None

PATIENT
  Age: 60 Year
  Sex: Female
  Weight: 86.18 kg

DRUGS (2)
  1. DULOXETINE 60MG LUPIN [Suspect]
     Active Substance: DULOXETINE
     Indication: FIBROMYALGIA
     Dosage: 2 CAPS ONCE DAILY TAKEN BY MOUTH
     Route: 048
     Dates: start: 20140929, end: 20141015
  2. DULOXETINE 60MG LUPIN [Suspect]
     Active Substance: DULOXETINE
     Indication: DEPRESSION
     Dosage: 2 CAPS ONCE DAILY TAKEN BY MOUTH
     Route: 048
     Dates: start: 20140929, end: 20141015

REACTIONS (9)
  - Feeling abnormal [None]
  - Tinnitus [None]
  - Myalgia [None]
  - Depression [None]
  - Product substitution issue [None]
  - Product formulation issue [None]
  - Suicidal ideation [None]
  - Social problem [None]
  - Bone pain [None]

NARRATIVE: CASE EVENT DATE: 20140929
